FAERS Safety Report 7113449-3 (Version None)
Quarter: 2010Q4

REPORT INFORMATION
  Report Type: 
  Country: None (occurrence: None)
  Receive Date: 20101119
  Receipt Date: 20101018
  Transmission Date: 20110411
  Serious: No
  Sender: FDA-Public Use
  Company Number: US-PFIZER INC-US-WYE-H17933710

PATIENT
  Age: 81 Year
  Sex: Female
  Weight: 78.912 kg

DRUGS (5)
  1. ADVIL [Suspect]
     Indication: PAIN
     Dosage: 200 MG, AS NEEDED
     Route: 048
  2. ADVIL [Suspect]
     Indication: INSOMNIA
  3. CARDIZEM [Concomitant]
  4. ACETYLSALICYLIC ACID [Concomitant]
  5. DIOVAN [Concomitant]

REACTIONS (1)
  - DRUG INEFFECTIVE [None]
